FAERS Safety Report 23114861 (Version 3)
Quarter: 2023Q4

REPORT INFORMATION
  Report Type: Report from Study
  Country: PL (occurrence: None)
  Receive Date: 20231027
  Receipt Date: 20231106
  Transmission Date: 20240110
  Serious: Yes (Death)
  Sender: FDA-Public Use
  Company Number: PL-ROCHE-3446768

PATIENT
  Age: 67 Year
  Sex: Female
  Weight: 88 kg

DRUGS (21)
  1. ATEZOLIZUMAB [Suspect]
     Active Substance: ATEZOLIZUMAB
     Indication: Metastatic renal cell carcinoma
     Route: 041
     Dates: start: 20210528
  2. CABOZANTINIB [Suspect]
     Active Substance: CABOZANTINIB
     Indication: Metastatic renal cell carcinoma
     Route: 048
     Dates: start: 20210528
  3. LEVOTHYROXINE SODIUM [Concomitant]
     Active Substance: LEVOTHYROXINE SODIUM
     Route: 048
     Dates: start: 2003
  4. PERINDOPRIL [Concomitant]
     Active Substance: PERINDOPRIL
     Route: 048
     Dates: start: 2003
  5. DIURED [Concomitant]
     Route: 048
     Dates: start: 2003
  6. NEBIVOLOL [Concomitant]
     Active Substance: NEBIVOLOL
     Route: 048
     Dates: start: 2003
  7. AVAMINA [Concomitant]
     Route: 048
     Dates: start: 202007
  8. ALLOPURINOL [Concomitant]
     Active Substance: ALLOPURINOL
     Route: 048
     Dates: start: 2019
  9. FENOFIBRATE [Concomitant]
     Active Substance: FENOFIBRATE
     Route: 048
     Dates: start: 2018
  10. AMLODIPINE BESYLATE [Concomitant]
     Active Substance: AMLODIPINE BESYLATE
     Route: 048
     Dates: start: 2003
  11. SPIRONOLACTONE [Concomitant]
     Active Substance: SPIRONOLACTONE
     Route: 048
     Dates: start: 2015
  12. D3 VITAMIN [Concomitant]
     Dosage: 2000 U
     Route: 048
     Dates: start: 20210427
  13. OMEPRAZOLE [Concomitant]
     Active Substance: OMEPRAZOLE
     Route: 048
     Dates: start: 20211001
  14. ASCORBIC ACID\RUTIN [Concomitant]
     Active Substance: ASCORBIC ACID\RUTIN
     Dosage: 1 CAPSULE
     Route: 048
     Dates: start: 20210723
  15. ACETAMINOPHEN\TRAMADOL HYDROCHLORIDE [Concomitant]
     Active Substance: ACETAMINOPHEN\TRAMADOL HYDROCHLORIDE
     Route: 048
     Dates: start: 20220617
  16. ASPARTIC ACID [Concomitant]
     Active Substance: ASPARTIC ACID
     Indication: Pain in extremity
     Dosage: 2 CAPSULE
     Route: 048
  17. 4FLEX [Concomitant]
     Dosage: 1 OTHER
     Route: 062
     Dates: start: 20220617
  18. HEPATIL [Concomitant]
     Indication: Alanine aminotransferase increased
     Dosage: 1 CAPSULE
     Route: 048
     Dates: start: 20221104
  19. HEPATIL [Concomitant]
     Indication: Aspartate aminotransferase increased
  20. TRIFAS [Concomitant]
     Indication: Aspiration pleural cavity
     Route: 048
     Dates: start: 20230922, end: 20230926
  21. POTASSIUM CHLORIDE [Concomitant]
     Active Substance: POTASSIUM CHLORIDE
     Indication: Aspiration pleural cavity
     Dosage: 2 CAPSULES
     Route: 048
     Dates: start: 20230922, end: 20230926

REACTIONS (1)
  - Malignant pleural effusion [Fatal]

NARRATIVE: CASE EVENT DATE: 20230404
